FAERS Safety Report 10196611 (Version 1)
Quarter: 2014Q2

REPORT INFORMATION
  Report Type: Spontaneous
  Country: US (occurrence: US)
  Receive Date: 20140527
  Receipt Date: 20140527
  Transmission Date: 20141212
  Serious: Yes (Death)
  Sender: FDA-Public Use
  Company Number: US-SA-2014SA068344

PATIENT
  Sex: 0

DRUGS (3)
  1. ANTI-THYMOCYTE GLOBULIN (RABBIT) [Suspect]
     Indication: BONE MARROW CONDITIONING REGIMEN
     Route: 065
  2. FLUDARABINE [Concomitant]
     Indication: BONE MARROW CONDITIONING REGIMEN
  3. MELPHALAN [Concomitant]
     Indication: BONE MARROW CONDITIONING REGIMEN

REACTIONS (1)
  - Post transplant lymphoproliferative disorder [Fatal]
